FAERS Safety Report 7562974-X (Version None)
Quarter: 2011Q2

REPORT INFORMATION
  Report Type: 
  Country: None (occurrence: None)
  Receive Date: 20110615
  Receipt Date: 20110606
  Transmission Date: 20111010
  Serious: Yes (Other)
  Sender: FDA-Public Use
  Company Number: TRP_07763_2011

PATIENT
  Sex: Male

DRUGS (2)
  1. PEG-INTRON [Suspect]
     Indication: HEPATITIS
     Dates: start: 20090101, end: 20100925
  2. RIBAVIRIN [Suspect]
     Indication: HEPATITIS
     Dates: start: 20090101, end: 20100925

REACTIONS (5)
  - DEPRESSION [None]
  - ASTHENIA [None]
  - DRY EYE [None]
  - CORONARY ARTERY OCCLUSION [None]
  - MALAISE [None]
